FAERS Safety Report 6575936-6 (Version None)
Quarter: 2010Q1

REPORT INFORMATION
  Report Type: 
  Country: None (occurrence: None)
  Receive Date: 20100209
  Receipt Date: 20100127
  Transmission Date: 20100710
  Serious: Yes (Hospitalization)
  Sender: FDA-Public Use
  Company Number: US-ELI_LILLY_AND_COMPANY-US201002001164

PATIENT
  Sex: Female

DRUGS (12)
  1. FORTEO [Suspect]
     Indication: OSTEOPOROSIS
     Dosage: 20 UG, DAILY (1/D)
     Dates: start: 20091101
  2. NEXIUM [Concomitant]
  3. NITROGLYCERIN [Concomitant]
  4. SINGULAIR [Concomitant]
  5. ZAPONEX [Concomitant]
  6. ALBUTEROL [Concomitant]
  7. ADVAIR DISKUS 100/50 [Concomitant]
  8. SPIRIVA [Concomitant]
  9. STEROID ANTIBACTERIALS [Concomitant]
  10. PREDNISONE [Concomitant]
  11. CIPRO [Concomitant]
  12. INSULIN [Concomitant]

REACTIONS (9)
  - AMNESIA [None]
  - CHRONIC OBSTRUCTIVE PULMONARY DISEASE [None]
  - INAPPROPRIATE SCHEDULE OF DRUG ADMINISTRATION [None]
  - INTENTIONAL DRUG MISUSE [None]
  - MEDICATION ERROR [None]
  - MEMORY IMPAIRMENT [None]
  - OXYGEN CONSUMPTION DECREASED [None]
  - PAIN [None]
  - VIRAL INFECTION [None]
